FAERS Safety Report 25321346 (Version 1)
Quarter: 2025Q2

REPORT INFORMATION
  Report Type: Spontaneous
  Country: US (occurrence: US)
  Receive Date: 20250515
  Receipt Date: 20250515
  Transmission Date: 20250717
  Serious: Yes (Other)
  Sender: AMGEN
  Company Number: US-AMGEN-USASP2025089468

PATIENT

DRUGS (3)
  1. RITUXIMAB [Suspect]
     Active Substance: RITUXIMAB
     Indication: Systemic lupus erythematosus
     Route: 065
  2. PREDNISONE [Suspect]
     Active Substance: PREDNISONE
     Indication: Systemic lupus erythematosus
     Route: 065
  3. HYDROXYCHLOROQUINE [Concomitant]
     Active Substance: HYDROXYCHLOROQUINE
     Route: 065

REACTIONS (17)
  - Lupus nephritis [Unknown]
  - Urinary bladder haemorrhage [Unknown]
  - Hypokalaemia [Unknown]
  - Kidney fibrosis [Unknown]
  - Glomerulosclerosis [Unknown]
  - Acute kidney injury [Unknown]
  - Off label use [Unknown]
  - Haematoma [Unknown]
  - Proteinuria [Unknown]
  - Double stranded DNA antibody positive [Unknown]
  - Haematuria [Unknown]
  - Synovitis [Unknown]
  - Benign familial haematuria [Unknown]
  - Focal segmental glomerulosclerosis [Unknown]
  - Mucosal ulceration [Unknown]
  - Arthritis [Unknown]
  - Arthralgia [Unknown]
